FAERS Safety Report 6533024-9 (Version None)
Quarter: 2010Q1

REPORT INFORMATION
  Report Type: 
  Country: None (occurrence: None)
  Receive Date: 20100111
  Receipt Date: 20100104
  Transmission Date: 20100710
  Serious: Yes (Other)
  Sender: FDA-Public Use
  Company Number: JP-BRISTOL-MYERS SQUIBB COMPANY-14913560

PATIENT
  Age: 43 Year
  Sex: Female

DRUGS (12)
  1. ABILIFY [Suspect]
     Indication: SCHIZOPHRENIA
     Route: 048
     Dates: start: 20090722, end: 20091127
  2. SERENACE [Concomitant]
     Dates: end: 20090819
  3. SEROQUEL [Concomitant]
     Dates: end: 20090909
  4. TRIHEXYPHENIDYL HCL [Concomitant]
     Dosage: POWDER
  5. VEGETAMIN-B [Concomitant]
     Dosage: TABLET
  6. ROHYPNOL [Concomitant]
     Dosage: TABLET
  7. SENNOSIDE A+B [Concomitant]
     Dosage: TABLET
  8. DEPAKENE [Concomitant]
     Dosage: DEPAKENE-R TAB
     Dates: start: 20080512
  9. RISPERDAL [Concomitant]
     Dosage: 1 DF = 1MG/ML LIQUID
     Dates: start: 20090325, end: 20091021
  10. RIVOTRIL [Concomitant]
     Dates: start: 20090916
  11. CONTOMIN [Concomitant]
     Dates: start: 20091118
  12. ZYPREXA [Concomitant]
     Dates: start: 20091127

REACTIONS (1)
  - DISTURBANCE IN SOCIAL BEHAVIOUR [None]
